FAERS Safety Report 8275166-6 (Version None)
Quarter: 2012Q2

REPORT INFORMATION
  Report Type: 
  Country: None (occurrence: None)
  Receive Date: 20120411
  Receipt Date: 20120405
  Transmission Date: 20120825
  Serious: Yes (Hospitalization)
  Sender: FDA-Public Use
  Company Number: PHHY2012GB029698

PATIENT
  Age: 22 Year
  Sex: Male

DRUGS (1)
  1. DOXYCYCLINE [Suspect]
     Indication: ACNE
     Dosage: 100 MG, UNK
     Route: 048

REACTIONS (4)
  - FOREIGN BODY [None]
  - PAIN [None]
  - OESOPHAGEAL PAIN [None]
  - OESOPHAGEAL ULCER [None]
